FAERS Safety Report 21448924 (Version 1)
Quarter: 2022Q4

REPORT INFORMATION
  Report Type: Spontaneous
  Country: US (occurrence: US)
  Receive Date: 20221013
  Receipt Date: 20221013
  Transmission Date: 20230112
  Serious: No
  Sender: FDA-Public Use
  Company Number: US-CIPLA LTD.-2022US05341

PATIENT
  Sex: Male

DRUGS (1)
  1. ALBUTEROL [Suspect]
     Active Substance: ALBUTEROL
     Indication: Dyspnoea
     Dosage: 0.18 MILLIGRAM, QID (2 PUFFS FOR EVERY 6 HOURS (QID))
     Route: 065
     Dates: start: 202208

REACTIONS (7)
  - Incorrect dose administered by device [Unknown]
  - Device delivery system issue [Unknown]
  - Product outer packaging issue [Unknown]
  - Device malfunction [Unknown]
  - Product substitution issue [Unknown]
  - Product contamination [Unknown]
  - Product cleaning inadequate [Unknown]

NARRATIVE: CASE EVENT DATE: 20220801
